FAERS Safety Report 15147427 (Version 1)
Quarter: 2018Q3

REPORT INFORMATION
  Report Type: Report from Study
  Country: None (occurrence: FI)
  Receive Date: 20180716
  Receipt Date: 20180716
  Transmission Date: 20181010
  Serious: Yes (Other)
  Sender: FDA-Public Use
  Company Number: FI-ABBVIE-18S-055-2413616-00

PATIENT
  Age: 74 Year
  Sex: Female

DRUGS (3)
  1. KARDOPAL [Concomitant]
     Indication: PRODUCT USED FOR UNKNOWN INDICATION
     Dosage: FOR THE NIGHT.
  2. DUODOPA [Suspect]
     Active Substance: CARBIDOPA\LEVODOPA
     Indication: PARKINSON^S DISEASE
     Dosage: 5?6 AM:2.5 ML; AT 8 AM: 4 ML;AT 10?11 AM: 4.5 ML; AFTERNOON: 5 ML;ED: 1 ML
     Route: 050
     Dates: start: 201602
  3. COMTESS [Concomitant]
     Active Substance: ENTACAPONE
     Indication: PRODUCT USED FOR UNKNOWN INDICATION
     Dosage: FOR THE NIGHT.

REACTIONS (7)
  - Device occlusion [Recovered/Resolved]
  - Stoma site irritation [Unknown]
  - Stoma site erythema [Recovering/Resolving]
  - Squamous cell carcinoma [Recovered/Resolved]
  - Stoma site discomfort [Unknown]
  - Stoma site hypergranulation [Recovered/Resolved]
  - Expired product administered [Recovered/Resolved]

NARRATIVE: CASE EVENT DATE: 2017
